FAERS Safety Report 8463381-8 (Version None)
Quarter: 2012Q2

REPORT INFORMATION
  Report Type: 
  Country: None (occurrence: None)
  Receive Date: 20120323
  Receipt Date: 20110921
  Transmission Date: 20120825
  Serious: Yes (Hospitalization)
  Sender: FDA-Public Use
  Company Number: 163-21880-11092746

PATIENT
  Age: 72 Year
  Sex: Male

DRUGS (5)
  1. FUROSEMIDE [Concomitant]
  2. VELCADE [Concomitant]
  3. AREDIA (FAMIDRONATE DISODIUM) [Concomitant]
  4. REVLIMID [Suspect]
     Indication: MULTIPLE MYELOMA
     Dosage: 25 MG, DAYS 1-14 OF 21, PO; 15 MG, DAYS 1-21 OF 28, PO
     Route: 048
     Dates: start: 20110901
  5. REVLIMID [Suspect]
     Indication: MULTIPLE MYELOMA
     Dosage: 25 MG, DAYS 1-14 OF 21, PO; 15 MG, DAYS 1-21 OF 28, PO
     Route: 048
     Dates: start: 20110708

REACTIONS (3)
  - DYSURIA [None]
  - OEDEMA [None]
  - DYSPNOEA [None]
